FAERS Safety Report 12392032 (Version 1)
Quarter: 2016Q2

REPORT INFORMATION
  Report Type: Spontaneous
  Country: FR (occurrence: FR)
  Receive Date: 20160523
  Receipt Date: 20160523
  Transmission Date: 20160815
  Serious: Yes (Other)
  Sender: FDA-Public Use
  Company Number: FR-ABBVIE-16K-056-1631207-00

PATIENT
  Age: 43 Year
  Sex: Female

DRUGS (2)
  1. HUMIRA [Suspect]
     Active Substance: ADALIMUMAB
     Route: 058
     Dates: start: 2016
  2. HUMIRA [Suspect]
     Active Substance: ADALIMUMAB
     Indication: PSORIATIC ARTHROPATHY
     Dosage: LOAD DOSE OF 80MG THEN 40MG EOW
     Route: 058
     Dates: start: 201602, end: 201602

REACTIONS (3)
  - Eye pain [Unknown]
  - Headache [Unknown]
  - Macular hole [Unknown]

NARRATIVE: CASE EVENT DATE: 2016
